FAERS Safety Report 5208947-3 (Version None)
Quarter: 2007Q1

REPORT INFORMATION
  Report Type: 
  Country: None (occurrence: None)
  Receive Date: 20070111
  Receipt Date: 20070111
  Transmission Date: 20070707
  Serious: Yes (Hospitalization)
  Sender: FDA-Public Use
  Company Number: None

PATIENT
  Age: 68 Year
  Sex: Male
  Weight: 74 kg

DRUGS (2)
  1. GEMCITABINE [Suspect]
     Indication: PANCREATIC CARCINOMA
     Dosage: 800 MG/M2 D1 + D8 Q 21 DAYS IV
     Route: 042
     Dates: start: 20070102, end: 20070102
  2. GLEEVEC [Suspect]
     Indication: PANCREATIC CARCINOMA
     Dosage: 300 MG D1-14 Q 21 DAYS PO
     Route: 048
     Dates: start: 20070102, end: 20070108

REACTIONS (4)
  - CELLULITIS [None]
  - NAUSEA [None]
  - NEUTROPENIA [None]
  - VOMITING [None]
